FAERS Safety Report 8371345-8 (Version None)
Quarter: 2012Q2

REPORT INFORMATION
  Report Type: 
  Country: None (occurrence: None)
  Receive Date: 20120518
  Receipt Date: 20120511
  Transmission Date: 20120825
  Serious: Yes (Hospitalization)
  Sender: FDA-Public Use
  Company Number: US-BAYER-2012-046979

PATIENT
  Sex: Female

DRUGS (1)
  1. BEYAZ [Suspect]
     Indication: CONTRACEPTION
     Dosage: 1 UNK, UNK
     Route: 048

REACTIONS (2)
  - PULMONARY EMBOLISM [None]
  - DEEP VEIN THROMBOSIS [None]
